FAERS Safety Report 4358050-X (Version None)
Quarter: 2004Q2

REPORT INFORMATION
  Report Type: 
  Country: None (occurrence: None)
  Receive Date: 20040514
  Receipt Date: 20040316
  Transmission Date: 20050107
  Serious: Yes (Hospitalization)
  Sender: FDA-Public Use
  Company Number: 200411095FR

PATIENT
  Age: 54 Year
  Sex: Male
  Weight: 111 kg

DRUGS (6)
  1. BIPROFENID [Suspect]
     Route: 048
     Dates: start: 20000208, end: 20000216
  2. GLYBURIDE [Suspect]
     Route: 048
     Dates: start: 20000204, end: 20000217
  3. GLUCOPHAGE [Suspect]
     Route: 048
     Dates: start: 20000218, end: 20000224
  4. GLUCOR [Suspect]
     Route: 048
     Dates: start: 20000208, end: 20000216
  5. DI-ANTALVIC [Suspect]
     Dates: start: 20000131, end: 20000216
  6. RIVOTRIL [Concomitant]
     Dates: start: 20000131, end: 20000216

REACTIONS (6)
  - CHOLESTASIS [None]
  - CYTOLYTIC HEPATITIS [None]
  - HEPATIC FIBROSIS [None]
  - HEPATIC STEATOSIS [None]
  - HEPATOMEGALY [None]
  - PYREXIA [None]
